FAERS Safety Report 10079093 (Version 1)
Quarter: 2014Q2

REPORT INFORMATION
  Report Type: Spontaneous
  Country: US (occurrence: None)
  Receive Date: 20140411
  Receipt Date: 20140411
  Transmission Date: 20141212
  Serious: Yes (Other)
  Sender: FDA-Public Use
  Company Number: None

PATIENT
  Age: 84 Year
  Sex: Female

DRUGS (18)
  1. IRBESARTAN [Suspect]
     Indication: HYPERTENSION
     Route: 048
     Dates: start: 20140211, end: 20140216
  2. AMLODIPINE BESYLATE [Concomitant]
  3. CALCIUM CARBONATE/VITAMIN D3 [Concomitant]
  4. CYANOCOBALAMIN/FA/PYRIDOXINE [Concomitant]
  5. CYCLOSPORINE, MODIFIED [Concomitant]
  6. FERROUS SULFATE [Concomitant]
  7. FUROSEMIDE [Concomitant]
  8. IRBESARTAN [Concomitant]
  9. MAGNESIUM OXIDE [Concomitant]
  10. MYCOPHENOLATE MOFETIL [Concomitant]
  11. OMEPRAZOLE [Concomitant]
  12. PREDNISONE [Concomitant]
  13. SIMVASTATIN [Concomitant]
  14. TICLOPIDINE HCL [Concomitant]
  15. VALSARTAN [Concomitant]
  16. MAGNESIUM [Concomitant]
  17. IRON [Concomitant]
  18. CALTRATE [Concomitant]

REACTIONS (9)
  - Dizziness [None]
  - Fatigue [None]
  - Confusional state [None]
  - Feeling abnormal [None]
  - Fall [None]
  - Amnesia [None]
  - Lethargy [None]
  - Vision blurred [None]
  - Gait disturbance [None]
